FAERS Safety Report 4912947-8 (Version None)
Quarter: 2006Q1

REPORT INFORMATION
  Report Type: 
  Country: None (occurrence: None)
  Receive Date: 20060215
  Receipt Date: 20051114
  Transmission Date: 20060701
  Serious: Yes (Hospitalization, Other)
  Sender: FDA-Public Use
  Company Number: US-AVENTIS-200519489US

PATIENT
  Sex: Male
  Weight: 129.53 kg

DRUGS (17)
  1. LANTUS [Suspect]
     Indication: DIABETES MELLITUS NON-INSULIN-DEPENDENT
     Dosage: DOSE UNIT: UNITS
     Dates: start: 20040101, end: 20040901
  2. LANTUS [Suspect]
     Dosage: DOSE: UNK
     Dates: end: 20050801
  3. AMARYL [Suspect]
     Indication: DIABETES MELLITUS NON-INSULIN-DEPENDENT
     Route: 048
     Dates: start: 20050224, end: 20050801
  4. AMARYL [Suspect]
     Route: 048
     Dates: start: 20050224, end: 20050801
  5. MICRONASE [Suspect]
     Dates: start: 20051001, end: 20060101
  6. NPH INSULIN [Suspect]
  7. GLUCOTROL XL [Suspect]
  8. AVANDIA [Suspect]
     Dates: start: 20010101, end: 20060101
  9. ACTOS [Suspect]
     Dates: start: 20030601, end: 20060101
  10. STARLIX [Suspect]
     Dates: start: 20030201, end: 20060101
  11. COUMADIN [Concomitant]
     Indication: BLOOD VISCOSITY INCREASED
     Route: 048
     Dates: start: 20040224
  12. AVAPRO [Concomitant]
     Indication: BLOOD PRESSURE
  13. TIAZAC [Concomitant]
     Indication: ARRHYTHMIA
  14. LASIX [Concomitant]
  15. K-DUR 10 [Concomitant]
  16. ANTI-ASTHMATICS [Concomitant]
     Indication: ASTHMA
     Dosage: DOSE: UNK
  17. OXYGEN [Concomitant]
     Indication: DYSPNOEA

REACTIONS (10)
  - BLOOD GLUCOSE INCREASED [None]
  - DYSPNOEA [None]
  - FEELING JITTERY [None]
  - HOSPITALISATION [None]
  - INITIAL INSOMNIA [None]
  - MUSCLE TWITCHING [None]
  - NERVOUSNESS [None]
  - PULMONARY FIBROSIS [None]
  - RESTLESS LEGS SYNDROME [None]
  - TREMOR [None]
